FAERS Safety Report 15074967 (Version 1)
Quarter: 2018Q2

REPORT INFORMATION
  Report Type: Spontaneous
  Country: US (occurrence: US)
  Receive Date: 20180627
  Receipt Date: 20180627
  Transmission Date: 20180711
  Serious: No
  Sender: FDA-Public Use
  Company Number: US-SAOL THERAPEUTICS-2017SAO01646

PATIENT
  Age: 51 Year
  Sex: Female
  Weight: 56.69 kg

DRUGS (15)
  1. LIORESAL [Suspect]
     Active Substance: BACLOFEN
     Indication: MULTIPLE SCLEROSIS
     Dosage: 218.4 ?G, \DAY
     Route: 037
  2. GLATIRAMER [Concomitant]
     Active Substance: GLATIRAMER
     Dosage: 40 MG, 3X/WEEK
  3. ADVIL/MOTRIN [Concomitant]
     Dosage: 800 MG, UP TO 2X/DAY
     Route: 048
  4. MINOCIN [Concomitant]
     Active Substance: MINOCYCLINE HYDROCHLORIDE
     Dosage: 100 MG, 1X/DAY
     Route: 048
  5. PROVIGIL [Concomitant]
     Active Substance: MODAFINIL
     Dosage: 100 MG, 1X/DAY
  6. LIORESAL [Suspect]
     Active Substance: BACLOFEN
     Indication: MUSCLE SPASTICITY
     Dosage: 249.8 ?G, \DAY
     Route: 037
     Dates: start: 20030418
  7. LIORESAL [Concomitant]
     Active Substance: BACLOFEN
     Dosage: 20 MG, UP TO 1X/DAY
     Route: 048
  8. LIPITOR [Concomitant]
     Active Substance: ATORVASTATIN CALCIUM
     Dosage: 40 MG, 1X/DAY
     Route: 048
  9. CELEXA [Concomitant]
     Active Substance: CITALOPRAM HYDROBROMIDE
     Dosage: 20 MG, 1X/DAY
     Route: 048
  10. ALTACE [Concomitant]
     Active Substance: RAMIPRIL
     Dosage: 10 MG, 1X/DAY
     Route: 048
  11. DULCOLAX NOS [Concomitant]
     Active Substance: BISACODYL OR DOCUSATE SODIUM
     Indication: CONSTIPATION
     Dosage: 5 MG, UP TO 1X/DAY
     Route: 048
  12. CEPHALEXIN. [Concomitant]
     Active Substance: CEPHALEXIN
     Dosage: 500 MG, 1X/DAY
     Route: 048
  13. FLONASE [Concomitant]
     Active Substance: FLUTICASONE PROPIONATE
     Dosage: 2 DOSAGE UNITS, 1X/DAY
     Route: 045
  14. LOPRESSOR [Concomitant]
     Active Substance: METOPROLOL TARTRATE
     Dosage: 50 MG, 1X/DAY
     Route: 048
  15. PROVIGIL [Concomitant]
     Active Substance: MODAFINIL
     Dosage: 200 MG, 1X/DAY
     Route: 048

REACTIONS (3)
  - Limb injury [Unknown]
  - Peripheral swelling [Not Recovered/Not Resolved]
  - Pain in extremity [Unknown]

NARRATIVE: CASE EVENT DATE: 201707
